FAERS Safety Report 20108744 (Version 1)
Quarter: 2021Q4

REPORT INFORMATION
  Report Type: Spontaneous
  Country: US (occurrence: US)
  Receive Date: 20211124
  Receipt Date: 20211124
  Transmission Date: 20220303
  Serious: Yes (Other)
  Sender: FDA-Public Use
  Company Number: US-GLAXOSMITHKLINE-US2021AMR241133

PATIENT
  Age: 49 Year
  Sex: Male
  Weight: 90 kg

DRUGS (3)
  1. WELLBUTRIN XL [Suspect]
     Active Substance: BUPROPION HYDROCHLORIDE
     Indication: Schizophrenia
     Dosage: 450 MG, QD
     Route: 048
     Dates: start: 2011
  2. ATOMOXETINE [Suspect]
     Active Substance: ATOMOXETINE
     Indication: Tardive dyskinesia
     Dosage: UNK
  3. PALIPERIDONE PALMITATE [Concomitant]
     Active Substance: PALIPERIDONE PALMITATE
     Indication: Product used for unknown indication
     Dosage: UNK

REACTIONS (12)
  - Seizure [Unknown]
  - Hallucination, visual [Unknown]
  - Skin cancer [Unknown]
  - Fall [Unknown]
  - Arthralgia [Unknown]
  - Insomnia [Not Recovered/Not Resolved]
  - Nightmare [Not Recovered/Not Resolved]
  - Fatigue [Unknown]
  - Pressure of speech [Unknown]
  - Irritability [Unknown]
  - Rash [Unknown]
  - Product use in unapproved indication [Unknown]
